FAERS Safety Report 16437717 (Version 1)
Quarter: 2019Q2

REPORT INFORMATION
  Report Type: Spontaneous
  Country: US (occurrence: US)
  Receive Date: 20190616
  Receipt Date: 20190616
  Transmission Date: 20190711
  Serious: No
  Sender: FDA-Public Use
  Company Number: US-TEVA-2019-US-1055185

PATIENT
  Sex: Female

DRUGS (1)
  1. TEVA^S PROPRANOLOL HCL 16 MG CAPSULES [Suspect]
     Active Substance: PROPRANOLOL HYDROCHLORIDE
     Indication: HYPERTENSION

REACTIONS (2)
  - Product physical issue [Unknown]
  - Drug ineffective [Unknown]
